FAERS Safety Report 17239947 (Version 2)
Quarter: 2020Q1

REPORT INFORMATION
  Report Type: Report from Study
  Country: CL (occurrence: CL)
  Receive Date: 20200106
  Receipt Date: 20200306
  Transmission Date: 20200409
  Serious: Yes (Life-Threatening, Disabling, Other)
  Sender: FDA-Public Use
  Company Number: CL-BEH-2020111320

PATIENT
  Age: 40 Year
  Sex: Female
  Weight: 73 kg

DRUGS (7)
  1. BERINERT [Suspect]
     Active Substance: HUMAN C1-ESTERASE INHIBITOR
     Dosage: 1500 INTERNATIONAL UNIT (3 VIALS OF 500 IU), QMT
     Route: 042
     Dates: start: 20200120, end: 20200120
  2. BERINERT [Suspect]
     Active Substance: HUMAN C1-ESTERASE INHIBITOR
     Indication: HEREDITARY ANGIOEDEMA
     Dosage: 3 VIALS
     Route: 042
  3. BERINERT [Suspect]
     Active Substance: HUMAN C1-ESTERASE INHIBITOR
     Dosage: 1500 INTERNATIONAL UNIT (3 VIALS OF 500 IU), QMT
     Route: 042
     Dates: start: 20200120, end: 20200120
  4. ADRENALINE [EPINEPHRINE] [Suspect]
     Active Substance: EPINEPHRINE
     Indication: HEREDITARY ANGIOEDEMA
     Dosage: UNK
     Route: 051
     Dates: start: 20191204
  5. ADRENALINE [EPINEPHRINE] [Suspect]
     Active Substance: EPINEPHRINE
     Indication: RESUSCITATION
  6. DESLORATADINE. [Concomitant]
     Active Substance: DESLORATADINE
     Indication: RHINITIS ALLERGIC
  7. BERINERT [Suspect]
     Active Substance: HUMAN C1-ESTERASE INHIBITOR
     Indication: HEREDITARY ANGIOEDEMA
     Dosage: 3 VIALS
     Route: 042

REACTIONS (13)
  - Hereditary angioedema [Not Recovered/Not Resolved]
  - Cough [Unknown]
  - Hereditary angioedema [Unknown]
  - Hereditary angioedema [Unknown]
  - Urinary retention [Recovered/Resolved]
  - Vomiting [Unknown]
  - Hereditary angioedema [Not Recovered/Not Resolved]
  - Tachycardia [Recovered/Resolved]
  - Palpitations [Recovered/Resolved]
  - Nasal congestion [Not Recovered/Not Resolved]
  - Injection site bruising [Unknown]
  - Vomiting [Unknown]
  - Oxygen saturation decreased [Unknown]

NARRATIVE: CASE EVENT DATE: 201912
